FAERS Safety Report 7090096-3 (Version None)
Quarter: 2010Q4

REPORT INFORMATION
  Report Type: 
  Country: None (occurrence: None)
  Receive Date: 20101105
  Receipt Date: 20101105
  Transmission Date: 20110411
  Serious: Yes (Hospitalization, Disabling, Other)
  Sender: FDA-Public Use
  Company Number: None

PATIENT
  Sex: Female
  Weight: 104.3273 kg

DRUGS (2)
  1. HERCEPTIN [Suspect]
  2. TEGRETOL [Suspect]

REACTIONS (7)
  - ASTHMA [None]
  - BREAST CANCER [None]
  - BRONCHITIS [None]
  - COLON CANCER [None]
  - COUGH [None]
  - LUNG DISORDER [None]
  - PNEUMONIA [None]
